FAERS Safety Report 7609956-7 (Version None)
Quarter: 2011Q3

REPORT INFORMATION
  Report Type: 
  Country: None (occurrence: None)
  Receive Date: 20110714
  Receipt Date: 20110709
  Transmission Date: 20111222
  Serious: Yes (Hospitalization)
  Sender: FDA-Public Use
  Company Number: DE-GILEAD-2011-0039942

PATIENT
  Sex: Male

DRUGS (4)
  1. NORVIR [Suspect]
     Route: 048
  2. PREZISTA [Suspect]
     Route: 048
  3. ATRIPLA [Suspect]
     Indication: HIV INFECTION
     Route: 048
  4. TRUVADA [Suspect]
     Indication: HIV INFECTION
     Route: 048

REACTIONS (6)
  - NAUSEA [None]
  - INTENTIONAL OVERDOSE [None]
  - WHITE BLOOD CELL COUNT INCREASED [None]
  - LIVER FUNCTION TEST ABNORMAL [None]
  - VOMITING [None]
  - BLOOD CREATINE PHOSPHOKINASE INCREASED [None]
